FAERS Safety Report 21471892 (Version 1)
Quarter: 2022Q4

REPORT INFORMATION
  Report Type: Spontaneous
  Country: US (occurrence: US)
  Receive Date: 20221018
  Receipt Date: 20221018
  Transmission Date: 20230113
  Serious: Yes (Other)
  Sender: FDA-Public Use
  Company Number: US-INTRA-CELLULAR THERAPIES, INC.-2022ICT01356

PATIENT
  Age: 33 Year

DRUGS (2)
  1. CAPLYTA [Suspect]
     Active Substance: LUMATEPERONE
  2. CLONIDINE [Concomitant]
     Active Substance: CLONIDINE
     Dosage: 0.1 MG, 1X/DAY AT BEDTIME
     Dates: start: 20220928

REACTIONS (3)
  - Neuroleptic malignant syndrome [Unknown]
  - Burning sensation [Unknown]
  - Nausea [Unknown]
